FAERS Safety Report 7744643-6 (Version None)
Quarter: 2011Q3

REPORT INFORMATION
  Report Type: 
  Country: None (occurrence: None)
  Receive Date: 20110912
  Receipt Date: 20110829
  Transmission Date: 20111222
  Serious: Yes (Hospitalization, Other)
  Sender: FDA-Public Use
  Company Number: PHHY2011JP76875

PATIENT
  Age: 81 Year
  Sex: Female

DRUGS (2)
  1. DIOVAN [Suspect]
     Indication: HYPERTENSION
     Dosage: 80 MG, QD
     Route: 048
     Dates: start: 20110501
  2. CONIEL [Concomitant]
     Dosage: 4 MG, UNK
     Route: 048
     Dates: start: 20110501

REACTIONS (7)
  - ABDOMINAL PAIN LOWER [None]
  - INSOMNIA [None]
  - WEIGHT DECREASED [None]
  - DIARRHOEA [None]
  - HYPOPHAGIA [None]
  - COLITIS [None]
  - OVARIAN CANCER RECURRENT [None]
